FAERS Safety Report 5747573-4 (Version None)
Quarter: 2008Q2

REPORT INFORMATION
  Report Type: 
  Country: None (occurrence: None)
  Receive Date: 20080523
  Receipt Date: 20080513
  Transmission Date: 20081010
  Serious: Yes (Hospitalization)
  Sender: FDA-Public Use
  Company Number: US-AVENTIS-200812245EU

PATIENT
  Age: 69 Year
  Sex: Male
  Weight: 61 kg

DRUGS (9)
  1. FUROSEMIDE [Suspect]
  2. TEMODAR [Suspect]
     Indication: GLIOBLASTOMA MULTIFORME
     Dosage: DOSE: 75-100
     Dates: start: 20080328, end: 20080417
  3. TEMODAR [Suspect]
     Dosage: DOSE: 75-100
     Dates: start: 20080229
  4. DIGOXIN [Suspect]
  5. THEOPHYLLINE [Suspect]
  6. CARBAMAZEPINE [Suspect]
  7. COMPAZINE [Suspect]
  8. DEXAMETHASONE TAB [Suspect]
  9. RADIOTHERAPY [Suspect]
     Indication: GLIOBLASTOMA MULTIFORME
     Dosage: DOSE: 60 GY
     Dates: end: 20080129

REACTIONS (7)
  - BRAIN OEDEMA [None]
  - CONVULSION [None]
  - DEEP VEIN THROMBOSIS [None]
  - HYPOXIA [None]
  - MUSCULAR WEAKNESS [None]
  - NAUSEA [None]
  - VOMITING [None]
